FAERS Safety Report 20094186 (Version 1)
Quarter: 2021Q4

REPORT INFORMATION
  Report Type: Spontaneous
  Country: US (occurrence: US)
  Receive Date: 20211122
  Receipt Date: 20211122
  Transmission Date: 20220303
  Serious: No
  Sender: FDA-Public Use
  Company Number: US-BIOVITRUM-2021US10861

PATIENT
  Sex: Male
  Weight: 5 kg

DRUGS (5)
  1. SYNAGIS [Suspect]
     Active Substance: PALIVIZUMAB
     Indication: Premature baby
     Dosage: SYNAGIS 100MG/ML VL LIQUID
     Route: 030
     Dates: start: 202102
  2. SYNAGIS [Suspect]
     Active Substance: PALIVIZUMAB
     Indication: Low birth weight baby
     Dates: start: 20211029
  3. VIAGRA [Concomitant]
     Active Substance: SILDENAFIL CITRATE
  4. LASIX [Concomitant]
     Active Substance: FUROSEMIDE
  5. SILDENAFIL [Concomitant]
     Active Substance: SILDENAFIL

REACTIONS (2)
  - Adverse reaction [Unknown]
  - Urticaria [Unknown]
